FAERS Safety Report 4268593-5 (Version None)
Quarter: 2004Q1

REPORT INFORMATION
  Report Type: 
  Country: None (occurrence: None)
  Receive Date: 20040108
  Receipt Date: 20031225
  Transmission Date: 20041129
  Serious: Yes (Hospitalization)
  Sender: FDA-Public Use
  Company Number: K200301940

PATIENT
  Age: 75 Year
  Sex: Male

DRUGS (5)
  1. ALTACE [Suspect]
     Dosage: 1 U, QD, ORAL
     Route: 048
     Dates: start: 20031001, end: 20031009
  2. DI-ANTALVIC(PARACETAMOL, DEXTROPROPOXYPHENE HYDROCHLORIDE) CAPSULE, 6U [Suspect]
     Dosage: 6 U, QD, ORAL
     Route: 048
     Dates: start: 20031001, end: 20031009
  3. MOPRAL(OMEPRAZOLE) CAPSULE, 20MG [Suspect]
     Dosage: 20 MG, QD, ORAL
     Route: 048
     Dates: start: 20030923, end: 20031009
  4. ZOCOR(SIMVASTATIN) TABLET, IU [Suspect]
     Dosage: 1 U, QD, ORAL
     Route: 048
     Dates: start: 20030925, end: 20031009
  5. SECTRAL [Concomitant]

REACTIONS (3)
  - CHOLESTASIS [None]
  - CYTOLYTIC HEPATITIS [None]
  - LIPASE INCREASED [None]
